FAERS Safety Report 20936140 (Version 1)
Quarter: 2022Q2

REPORT INFORMATION
  Report Type: Spontaneous
  Country: US (occurrence: None)
  Receive Date: 20220609
  Receipt Date: 20220609
  Transmission Date: 20220721
  Serious: Yes (Hospitalization)
  Sender: FDA-Public Use
  Company Number: US-ROCHE-2845981

PATIENT
  Age: 37 Year
  Sex: Male

DRUGS (13)
  1. ACTEMRA [Suspect]
     Active Substance: TOCILIZUMAB
     Indication: Rheumatoid arthritis
     Route: 058
     Dates: start: 202004, end: 202105
  2. WARFARIN [Concomitant]
     Active Substance: WARFARIN
  3. VITAMIN D3 [Concomitant]
     Active Substance: CHOLECALCIFEROL
  4. TRAMADOL [Concomitant]
     Active Substance: TRAMADOL
  5. PREDNISONE [Concomitant]
     Active Substance: PREDNISONE
  6. PLAQUENIL [Concomitant]
     Active Substance: HYDROXYCHLOROQUINE SULFATE
  7. PEPCID [Concomitant]
     Active Substance: FAMOTIDINE
  8. METHOTREXATE [Concomitant]
     Active Substance: METHOTREXATE
  9. LIDOCAINE\PRILOCAINE [Concomitant]
     Active Substance: LIDOCAINE\PRILOCAINE
     Route: 061
  10. FOLIC ACID [Concomitant]
     Active Substance: FOLIC ACID
  11. DIAZEPAM [Concomitant]
     Active Substance: DIAZEPAM
     Route: 048
  12. CARVEDILOL [Concomitant]
     Active Substance: CARVEDILOL
  13. HYOSCYAMINE [Concomitant]
     Active Substance: HYOSCYAMINE
     Route: 060

REACTIONS (1)
  - Hepatic enzyme increased [Unknown]

NARRATIVE: CASE EVENT DATE: 20210501
